FAERS Safety Report 7568485-X (Version None)
Quarter: 2011Q2

REPORT INFORMATION
  Report Type: 
  Country: None (occurrence: None)
  Receive Date: 20110617
  Receipt Date: 20110606
  Transmission Date: 20111010
  Serious: Yes (Other)
  Sender: FDA-Public Use
  Company Number: FK201101145

PATIENT
  Age: 90 Year
  Sex: Male

DRUGS (1)
  1. INTRALIPID 20%(LIPID EMULSION) (LIPID EMULSION) [Suspect]
     Indication: PARENTERAL NUTRITION
     Dosage: 3 BAGS, INTRAVENOUS DRIP
     Route: 041
     Dates: start: 20110601, end: 20110603

REACTIONS (2)
  - INCORRECT DOSE ADMINISTERED [None]
  - CEREBRAL INFARCTION [None]
